FAERS Safety Report 4819719-3 (Version None)
Quarter: 2005Q4

REPORT INFORMATION
  Report Type: 
  Country: None (occurrence: None)
  Receive Date: 20051102
  Receipt Date: 20051102
  Transmission Date: 20060501
  Serious: Yes (Hospitalization)
  Sender: FDA-Public Use
  Company Number: None

PATIENT
  Age: 66 Year
  Sex: Male
  Weight: 119 kg

DRUGS (3)
  1. METFORMIN HCL [Suspect]
  2. GLYBURIDE 5 MG/METFORMIN [Concomitant]
  3. ROSIGLITAZONE [Concomitant]

REACTIONS (1)
  - HYPOGLYCAEMIA [None]
